FAERS Safety Report 17744966 (Version 1)
Quarter: 2020Q2

REPORT INFORMATION
  Report Type: Spontaneous
  Country: US (occurrence: US)
  Receive Date: 20200505
  Receipt Date: 20200505
  Transmission Date: 20200714
  Serious: Yes (Life-Threatening, Hospitalization, Disabling)
  Sender: FDA-Public Use
  Company Number: None

PATIENT
  Age: 30 Year
  Sex: Female
  Weight: 158.26 kg

DRUGS (5)
  1. GLUCOMONITOR FREE STYLE [Concomitant]
  2. PREMAMA [Concomitant]
  3. GEODON [Suspect]
     Active Substance: ZIPRASIDONE HYDROCHLORIDE\ZIPRASIDONE MESYLATE
  4. LATUDA [Suspect]
     Active Substance: LURASIDONE HYDROCHLORIDE
  5. RISPERIDONE. [Suspect]
     Active Substance: RISPERIDONE

REACTIONS (11)
  - Product taste abnormal [None]
  - Product odour abnormal [None]
  - Psychotic disorder [None]
  - Confusional state [None]
  - Vomiting [None]
  - Haemoptysis [None]
  - Feeling abnormal [None]
  - Myocardial infarction [None]
  - Sleep disorder [None]
  - Abdominal discomfort [None]
  - Catatonia [None]

NARRATIVE: CASE EVENT DATE: 20200301
